FAERS Safety Report 8379595-1 (Version None)
Quarter: 2012Q1

REPORT INFORMATION
  Report Type: 
  Country: None (occurrence: None)
  Receive Date: 20120323
  Receipt Date: 20110524
  Transmission Date: 20120608
  Serious: Yes (Disabling)
  Sender: FDA-Public Use
  Company Number: 163-21880-11040904

PATIENT
  Age: 80 Year
  Sex: Female

DRUGS (9)
  1. AMLODIPINE BESYLATE (AMLODIPINE BESILATE)(UNKNOWN) [Concomitant]
  2. TIMOLOL MALEATE(TIMOLOL MALEATE)(UNKNOWN) [Concomitant]
  3. SIMETHICONE-80 (DIMETICONE, ACTIVATED)(UNKNOWN) [Concomitant]
  4. LUMIGAN (BIMATOPROST)(UNKNOWN) [Concomitant]
  5. OXYCONTIN [Concomitant]
  6. REVLIMID [Suspect]
     Indication: MULTIPLE MYELOMA
     Dosage: 10 MG, DAIILY FOR 21 DAYS, PO
     Route: 048
     Dates: start: 20110329
  7. LASIX [Concomitant]
  8. BENICAR (OLMESARTAN MEDOXOMIL)(UNKNOWN) [Concomitant]
  9. VITAMIN B12 (CYANOCOBALAMIN)(UNKNOWN) [Concomitant]

REACTIONS (3)
  - DIARRHOEA [None]
  - NEUROPATHY PERIPHERAL [None]
  - NAUSEA [None]
